FAERS Safety Report 13993309 (Version 2)
Quarter: 2017Q3

REPORT INFORMATION
  Report Type: Spontaneous
  Country: LB (occurrence: LB)
  Receive Date: 20170920
  Receipt Date: 20170929
  Transmission Date: 20171128
  Serious: Yes (Death, Other)
  Sender: FDA-Public Use
  Company Number: LB-JAZZ-2017-LB-011825

PATIENT
  Age: 51 Year
  Sex: Female

DRUGS (6)
  1. TARGOCID [Concomitant]
     Active Substance: TEICOPLANIN
     Indication: ANTIBIOTIC THERAPY
     Dosage: 400 MG, UNK
  2. AMPHOTERICIN [Concomitant]
     Active Substance: AMPHOTERICIN B
     Indication: ANTIFUNGAL TREATMENT
     Dosage: UNK
  3. AMIKACIN [Concomitant]
     Active Substance: AMIKACIN
     Indication: ANTIBIOTIC THERAPY
  4. MEROPENEM. [Concomitant]
     Active Substance: MEROPENEM
     Indication: PRODUCT USED FOR UNKNOWN INDICATION
     Dosage: 1G
  5. DEFIBROTIDE (NPB) [Suspect]
     Active Substance: DEFIBROTIDE SODIUM
     Indication: VENOOCCLUSIVE DISEASE
     Dosage: 400MG, QID
     Route: 042
     Dates: start: 20170813, end: 20170820
  6. VANCOMYCIN [Concomitant]
     Active Substance: VANCOMYCIN
     Indication: ANTIBIOTIC THERAPY
     Dosage: 1 G, UNK

REACTIONS (3)
  - Sepsis [Fatal]
  - Hepatotoxicity [Unknown]
  - Multiple organ dysfunction syndrome [Unknown]

NARRATIVE: CASE EVENT DATE: 20170820
